FAERS Safety Report 12364810 (Version 1)
Quarter: 2016Q2

REPORT INFORMATION
  Report Type: Spontaneous
  Country: US (occurrence: US)
  Receive Date: 20160513
  Receipt Date: 20160513
  Transmission Date: 20160815
  Serious: No
  Sender: FDA-Public Use
  Company Number: US-PFIZER INC-2016233202

PATIENT
  Age: 72 Year
  Sex: Female

DRUGS (2)
  1. IBUPROFEN SODIUM. [Suspect]
     Active Substance: IBUPROFEN SODIUM
     Dosage: UNK
  2. SUDAFED [Suspect]
     Active Substance: PSEUDOEPHEDRINE HYDROCHLORIDE
     Dosage: UNK

REACTIONS (1)
  - Drug hypersensitivity [Unknown]
